FAERS Safety Report 4802265-0 (Version None)
Quarter: 2005Q4

REPORT INFORMATION
  Report Type: 
  Country: None (occurrence: None)
  Receive Date: 20051018
  Receipt Date: 20051006
  Transmission Date: 20060501
  Serious: Yes (Hospitalization)
  Sender: FDA-Public Use
  Company Number: CH-BRISTOL-MYERS SQUIBB COMPANY-13138706

PATIENT
  Sex: Female

DRUGS (6)
  1. ABILIFY [Suspect]
     Indication: SCHIZOPHRENIA
     Route: 048
     Dates: start: 20050901, end: 20050921
  2. ABILIFY [Suspect]
     Route: 048
     Dates: start: 20050906, end: 20050918
  3. ABILIFY [Suspect]
     Route: 048
     Dates: start: 20050919, end: 20050921
  4. ZESTRIL [Suspect]
     Route: 048
     Dates: start: 20050909, end: 20050914
  5. METOPROLOL [Concomitant]
  6. OLANZAPINE [Concomitant]

REACTIONS (4)
  - HYPERVENTILATION [None]
  - INSOMNIA [None]
  - RESTLESSNESS [None]
  - TACHYCARDIA [None]
